FAERS Safety Report 22201004 (Version 2)
Quarter: 2023Q2

REPORT INFORMATION
  Report Type: Spontaneous
  Country: ES (occurrence: ES)
  Receive Date: 20230412
  Receipt Date: 20230503
  Transmission Date: 20230721
  Serious: Yes (Other)
  Sender: FDA-Public Use
  Company Number: ES-INCYTE CORPORATION-2023IN002692

PATIENT
  Age: 87 Year
  Sex: Female
  Weight: 52 kg

DRUGS (13)
  1. LENALIDOMIDE [Suspect]
     Active Substance: LENALIDOMIDE
     Indication: Diffuse large B-cell lymphoma
     Dosage: UNK
     Route: 042
     Dates: start: 20220916, end: 20221014
  2. LENALIDOMIDE [Suspect]
     Active Substance: LENALIDOMIDE
     Dosage: 10 MILLIGRAM,, EACH 2 DAYS
     Route: 048
     Dates: start: 20221014, end: 20221209
  3. TAFASITAMAB [Suspect]
     Active Substance: TAFASITAMAB
     Indication: Diffuse large B-cell lymphoma
     Dosage: INCMOR00208
     Route: 042
     Dates: start: 20220916, end: 20221014
  4. ATENOLOL [Concomitant]
     Active Substance: ATENOLOL
     Indication: Product used for unknown indication
     Dosage: 12.5 MILLIGRAM, ONCE A DAY
     Route: 048
     Dates: start: 20140228
  5. PANPRAZOL [Concomitant]
     Indication: Product used for unknown indication
     Dosage: 40 MILLIGRAM, ONCE A DAY
     Route: 048
     Dates: start: 20181113
  6. REPAGLINIDE [Concomitant]
     Active Substance: REPAGLINIDE
     Indication: Product used for unknown indication
     Dosage: 0.5 MILLIGRAM, ONCE A DAY
     Route: 048
     Dates: start: 20181113
  7. TRAZODONE [Concomitant]
     Active Substance: TRAZODONE HYDROCHLORIDE
     Indication: Product used for unknown indication
     Dosage: 100 MILLIGRAM
     Route: 065
     Dates: start: 20181113
  8. ACENOCOUMAROL [Concomitant]
     Active Substance: ACENOCOUMAROL
     Indication: Product used for unknown indication
     Dosage: UNK
     Route: 065
     Dates: start: 20190820
  9. ENALAPRIL [Concomitant]
     Active Substance: ENALAPRIL
     Indication: Product used for unknown indication
     Dosage: 2.5 MILLIGRAM, ONCE A DAY
     Route: 048
     Dates: start: 20200217
  10. EZETIMIBE\ROSUVASTATIN ZINC [Concomitant]
     Active Substance: EZETIMIBE\ROSUVASTATIN ZINC
     Indication: Product used for unknown indication
     Dosage: UNK, DAILY,10/10 DAILY
     Route: 065
     Dates: start: 20200525
  11. JENTADUETO [Concomitant]
     Active Substance: LINAGLIPTIN\METFORMIN HYDROCHLORIDE
     Indication: Product used for unknown indication
     Dosage: 25/850 DAILY
     Route: 065
     Dates: start: 20200624
  12. CALCIFEDIOL [Concomitant]
     Active Substance: CALCIFEDIOL
     Indication: Product used for unknown indication
     Dosage: UNK,0.266 MONTHLY
     Route: 065
     Dates: start: 20210301
  13. ACYCLOVIR [Concomitant]
     Active Substance: ACYCLOVIR
     Indication: Prophylaxis
     Dosage: 400 MILLIGRAM, ONCE A DAY
     Route: 048
     Dates: start: 20220301

REACTIONS (2)
  - Cellulitis [Recovered/Resolved]
  - Chronic kidney disease [Recovered/Resolved]

NARRATIVE: CASE EVENT DATE: 20221011
